FAERS Safety Report 10522134 (Version 3)
Quarter: 2015Q1

REPORT INFORMATION
  Report Type: Spontaneous
  Country: US (occurrence: US)
  Receive Date: 20141016
  Receipt Date: 20150319
  Transmission Date: 20150720
  Serious: Yes (Other)
  Sender: FDA-Public Use
  Company Number: US-PFIZER INC-2014283125

PATIENT
  Sex: Female

DRUGS (1)
  1. CHANTIX [Suspect]
     Active Substance: VARENICLINE TARTRATE
     Indication: SMOKING CESSATION THERAPY
     Dosage: UNK

REACTIONS (8)
  - Osteoarthritis [Unknown]
  - Spinal osteoarthritis [Unknown]
  - Insomnia [Unknown]
  - Abdominal distension [Unknown]
  - Dyspepsia [Unknown]
  - Eructation [Unknown]
  - Depressed mood [Unknown]
  - Pain [Unknown]
